FAERS Safety Report 5354898-3 (Version None)
Quarter: 2007Q2

REPORT INFORMATION
  Report Type: 
  Country: None (occurrence: None)
  Receive Date: 20070611
  Receipt Date: 20070604
  Transmission Date: 20071010
  Serious: Yes (Death, Other)
  Sender: FDA-Public Use
  Company Number: AZAUS200700162

PATIENT
  Age: 79 Year
  Sex: Male
  Weight: 90.3 kg

DRUGS (8)
  1. VIDAZA [Suspect]
     Indication: ACUTE MYELOID LEUKAEMIA
     Dosage: 50 MG/M2 (DAYS 1 THROUGH 10, EVERY 28 DAYS), SUBCUTANEOUS
     Route: 058
     Dates: start: 20070326, end: 20070404
  2. MS-275 (INVESTIGATIONAL HISTONE DEACETYLASE INHIBITOR) (INVESTIGATIONA [Suspect]
     Indication: ACUTE MYELOID LEUKAEMIA
     Dosage: 4 MG/M2 (DAYS 3 AND 10, EVERY 28 DAYS), ORAL
     Route: 048
     Dates: start: 20070328, end: 20070404
  3. LASIX [Concomitant]
  4. COLACE (DOCUSATE SODIUM) [Concomitant]
  5. SENOKOT [Concomitant]
  6. NEURONTIN [Concomitant]
  7. PENICILLIN [Concomitant]
  8. MULTI-VITAMIN [Concomitant]

REACTIONS (25)
  - ALANINE AMINOTRANSFERASE INCREASED [None]
  - ASPARTATE AMINOTRANSFERASE INCREASED [None]
  - ASTHENIA [None]
  - BLOOD POTASSIUM DECREASED [None]
  - CREPITATIONS [None]
  - DECREASED APPETITE [None]
  - DISCOMFORT [None]
  - DYSPNOEA EXERTIONAL [None]
  - FATIGUE [None]
  - GLAUCOMA [None]
  - HERPES ZOSTER [None]
  - HYPERTENSION [None]
  - HYPONATRAEMIA [None]
  - INAPPROPRIATE ANTIDIURETIC HORMONE SECRETION [None]
  - INSOMNIA [None]
  - MUSCULOSKELETAL CHEST PAIN [None]
  - OEDEMA PERIPHERAL [None]
  - PANCYTOPENIA [None]
  - PARAESTHESIA [None]
  - PITTING OEDEMA [None]
  - RESTLESSNESS [None]
  - ROSACEA [None]
  - SOMNOLENCE [None]
  - SUDDEN DEATH [None]
  - TOOTH INFECTION [None]
